FAERS Safety Report 6283245-8 (Version None)
Quarter: 2009Q3

REPORT INFORMATION
  Report Type: 
  Country: None (occurrence: None)
  Receive Date: 20090722
  Receipt Date: 20090722
  Transmission Date: 20100115
  Serious: Yes (Other)
  Sender: FDA-Public Use
  Company Number: None

PATIENT
  Age: 37 Year
  Sex: Female
  Weight: 129.2752 kg

DRUGS (1)
  1. VIVAGLOBIN [Suspect]
     Dosage: 18.8 GRAMS BID
     Dates: start: 20090718

REACTIONS (4)
  - DYSPNOEA [None]
  - ERYTHEMA [None]
  - PRURITUS [None]
  - RASH MACULAR [None]
